FAERS Safety Report 13121774 (Version 1)
Quarter: 2017Q1

REPORT INFORMATION
  Report Type: Spontaneous
  Country: US (occurrence: US)
  Receive Date: 20170116
  Receipt Date: 20170116
  Transmission Date: 20170428
  Serious: Yes (Hospitalization)
  Sender: FDA-Public Use
  Company Number: None

PATIENT
  Sex: Female

DRUGS (13)
  1. CELLCEPT [Suspect]
     Active Substance: MYCOPHENOLATE MOFETIL\MYCOPHENOLATE MOFETIL HYDROCHLORIDE
     Indication: PRODUCT USED FOR UNKNOWN INDICATION
     Dosage: 5 MLS BID PO
     Route: 048
     Dates: start: 20161012
  2. DIAZEPAM. [Concomitant]
     Active Substance: DIAZEPAM
  3. FOLIC ACID. [Concomitant]
     Active Substance: FOLIC ACID
  4. TIZANIDINE. [Concomitant]
     Active Substance: TIZANIDINE
  5. GABAPENTIN. [Concomitant]
     Active Substance: GABAPENTIN
  6. TRAMADOL. [Concomitant]
     Active Substance: TRAMADOL
  7. FENTANYL. [Concomitant]
     Active Substance: FENTANYL
  8. DRONABINOL. [Concomitant]
     Active Substance: DRONABINOL
  9. XIFAXAN [Concomitant]
     Active Substance: RIFAXIMIN
  10. MEMANTINE. [Concomitant]
     Active Substance: MEMANTINE
  11. OXYCODONE [Concomitant]
     Active Substance: OXYCODONE
  12. HYDROMORPHONE [Concomitant]
     Active Substance: HYDROMORPHONE
  13. PANTOPRAZOLE [Concomitant]
     Active Substance: PANTOPRAZOLE SODIUM

REACTIONS (1)
  - Infection [None]
